FAERS Safety Report 8831342 (Version 1)
Quarter: 2012Q4

REPORT INFORMATION
  Report Type: 
  Country: BR (occurrence: BR)
  Receive Date: 20121009
  Receipt Date: 20121009
  Transmission Date: 20130627
  Serious: Yes (Other)
  Sender: FDA-Public Use
  Company Number: BR-SANOFI-AVENTIS-2012SA072825

PATIENT
  Sex: Male

DRUGS (1)
  1. LANTUS [Suspect]
     Indication: DIABETES
     Route: 065

REACTIONS (1)
  - Laryngeal operation [Unknown]
